FAERS Safety Report 13841370 (Version 1)
Quarter: 2017Q3

REPORT INFORMATION
  Report Type: Spontaneous
  Country: JP (occurrence: JP)
  Receive Date: 20170807
  Receipt Date: 20170807
  Transmission Date: 20171127
  Serious: Yes (Other)
  Sender: FDA-Public Use
  Company Number: JP-PFIZER INC-2017334339

PATIENT
  Age: 71 Year
  Sex: Male

DRUGS (19)
  1. RIFAMPICIN [Concomitant]
     Active Substance: RIFAMPIN
     Indication: PULMONARY TUBERCULOSIS
     Dosage: UNK
     Dates: start: 20141104, end: 20160105
  2. ETHAMBUTOL DIHYDROCHLORIDE [Concomitant]
     Active Substance: ETHAMBUTOL HYDROCHLORIDE
     Indication: PULMONARY TUBERCULOSIS
     Dosage: UNK
     Dates: start: 20141104, end: 20161110
  3. LEVOFLOXACIN HEMIHYDRATE [Concomitant]
     Active Substance: LEVOFLOXACIN
     Indication: PULMONARY TUBERCULOSIS
     Dosage: UNK
     Dates: start: 20141205, end: 20161110
  4. PYRAZINAMIDE. [Suspect]
     Active Substance: PYRAZINAMIDE
     Indication: PULMONARY TUBERCULOSIS
     Dosage: UNK
     Route: 048
     Dates: start: 20141104, end: 20141116
  5. PYRAZINAMIDE. [Suspect]
     Active Substance: PYRAZINAMIDE
     Dosage: 1000 MG, DAILY
     Route: 048
     Dates: start: 20161114, end: 20161220
  6. ISONIAZID. [Concomitant]
     Active Substance: ISONIAZID
     Indication: PULMONARY TUBERCULOSIS
     Dosage: UNK
     Dates: start: 20141104, end: 20161110
  7. METHYLPREDNISOLONE NA SUCCINATE [Concomitant]
     Active Substance: METHYLPREDNISOLONE SODIUM SUCCINATE
     Dosage: UNK
     Dates: start: 20160202, end: 20160204
  8. MYCOBUTIN [Suspect]
     Active Substance: RIFABUTIN
     Indication: PULMONARY TUBERCULOSIS
     Dosage: 150 MG, DAILY
     Route: 048
     Dates: start: 20161114, end: 20170329
  9. PREDONINE [Concomitant]
     Active Substance: PREDNISOLONE
     Dosage: UNK
     Dates: start: 20160203, end: 20161012
  10. TUBERMIN [Suspect]
     Active Substance: ETHIONAMIDE
     Indication: TUBERCULOSIS
     Dosage: 200 MG, DAILY
     Route: 048
     Dates: start: 20170510, end: 20170614
  11. CARBOCISTEINE [Concomitant]
     Active Substance: CARBOCYSTEINE
     Indication: PULMONARY TUBERCULOSIS
     Dosage: UNK
     Dates: start: 20161116, end: 20170227
  12. DELTYBA [Suspect]
     Active Substance: DELAMANID
     Indication: TUBERCULOSIS
     Dosage: 200 MG, DAILY
     Route: 048
     Dates: start: 20161202
  13. NEOPHAGEN [Concomitant]
     Active Substance: GLYCYRRHIZIN
     Indication: HEPATIC FUNCTION ABNORMAL
  14. AVELOX [Concomitant]
     Active Substance: MOXIFLOXACIN HYDROCHLORIDE
     Indication: TUBERCULOSIS
     Dosage: UNK
     Dates: start: 20170329
  15. MUCOSTA [Suspect]
     Active Substance: REBAMIPIDE
     Indication: PULMONARY TUBERCULOSIS
     Dosage: 300 MG, DAILY
     Route: 048
     Dates: start: 20161116, end: 20170329
  16. STREPTOMYCIN SULFATE. [Suspect]
     Active Substance: STREPTOMYCIN SULFATE
     Indication: TUBERCULOSIS
     Dosage: 750 MG, 2X/DAY
     Route: 030
     Dates: start: 20161114, end: 20170123
  17. TAKECAB [Suspect]
     Active Substance: VONOPRAZAN FUMURATE
     Indication: PULMONARY TUBERCULOSIS
     Dosage: 20 MG, DAILY
     Route: 048
     Dates: start: 20161201, end: 20170420
  18. SULPIRIDE [Suspect]
     Active Substance: SULPIRIDE
     Indication: PULMONARY TUBERCULOSIS
     Dosage: 150 MG, DAILY
     Route: 048
     Dates: start: 20170304, end: 20170420
  19. CYCLOSERINE. [Concomitant]
     Active Substance: CYCLOSERINE
     Indication: PULMONARY TUBERCULOSIS

REACTIONS (6)
  - Hepatic function abnormal [Recovering/Resolving]
  - Renal impairment [Recovering/Resolving]
  - Liver disorder [Recovering/Resolving]
  - Condition aggravated [Recovering/Resolving]
  - Liver disorder [Unknown]
  - Drug eruption [Recovering/Resolving]

NARRATIVE: CASE EVENT DATE: 20161220
